FAERS Safety Report 13853303 (Version 12)
Quarter: 2018Q4

REPORT INFORMATION
  Report Type: Report from Study
  Country: AU (occurrence: AU)
  Receive Date: 20170810
  Receipt Date: 20181228
  Transmission Date: 20190204
  Serious: Yes (Other)
  Sender: FDA-Public Use
  Company Number: PHHY2017AU116196

PATIENT
  Sex: Female
  Weight: 61 kg

DRUGS (6)
  1. IRBESARTAN. [Suspect]
     Active Substance: IRBESARTAN
     Indication: BLOOD PRESSURE INCREASED
     Dosage: 75 MG, QD
     Route: 048
     Dates: start: 20140510
  2. DEPO-PROVERA [Concomitant]
     Active Substance: MEDROXYPROGESTERONE ACETATE
     Indication: PRODUCT USED FOR UNKNOWN INDICATION
     Dosage: MORE THAN 10 YEARS
     Route: 065
  3. VITAMIN D [Concomitant]
     Active Substance: CHOLECALCIFEROL
     Indication: PRODUCT USED FOR UNKNOWN INDICATION
     Dosage: UNK
     Route: 065
     Dates: start: 20181203
  4. ENDEP [Concomitant]
     Active Substance: AMITRIPTYLINE HYDROCHLORIDE
     Indication: SLEEP DISORDER
     Dosage: 25 OT, PRN
     Route: 065
     Dates: start: 20120423
  5. GILENYA [Suspect]
     Active Substance: FINGOLIMOD HYDROCHLORIDE
     Dosage: UNK UNK, QD
     Route: 065
     Dates: start: 20120110
  6. GILENYA [Suspect]
     Active Substance: FINGOLIMOD HYDROCHLORIDE
     Indication: RELAPSING-REMITTING MULTIPLE SCLEROSIS
     Dosage: UNK
     Route: 048
     Dates: start: 2011

REACTIONS (16)
  - Stress [Not Recovered/Not Resolved]
  - Blood cholesterol increased [Unknown]
  - Pain in extremity [Recovered/Resolved]
  - Blood pressure increased [Recovered/Resolved]
  - Weight increased [Unknown]
  - Back pain [Recovered/Resolved]
  - Concomitant disease aggravated [Recovered/Resolved]
  - Back pain [Not Recovered/Not Resolved]
  - Panic attack [Recovered/Resolved]
  - Fall [Recovered/Resolved]
  - JC polyomavirus test positive [Unknown]
  - Multiple sclerosis relapse [Recovered/Resolved]
  - Memory impairment [Recovered/Resolved]
  - Heart rate increased [Recovered/Resolved]
  - Basal cell carcinoma [Unknown]
  - Depressed mood [Unknown]

NARRATIVE: CASE EVENT DATE: 2014
